FAERS Safety Report 21312685 (Version 1)
Quarter: 2022Q3

REPORT INFORMATION
  Report Type: Spontaneous
  Country: US (occurrence: None)
  Receive Date: 20220908
  Receipt Date: 20220908
  Transmission Date: 20221026
  Serious: Yes (unspecified)
  Sender: FDA-Public Use
  Company Number: None

PATIENT
  Age: 17 Year
  Sex: Female
  Weight: 95.71 kg

DRUGS (9)
  1. METFORMIN [Suspect]
     Active Substance: METFORMIN HYDROCHLORIDE
     Indication: Metabolic syndrome
     Dosage: FREQUENCY : DAILY;?
     Route: 048
     Dates: start: 20220512, end: 20220516
  2. Fluoxetine capsules - 20 mg by mouth daily [Concomitant]
  3. Omeprazole DR capsules - 20mg by mouth daily [Concomitant]
  4. Multivitamin with minerals - 1 tablet by mouth daily [Concomitant]
  5. Lithium DR tablets - 450mg by mouth twice daily [Concomitant]
  6. Trazodone tablets - 50mg by mouth daily at bedtime [Concomitant]
  7. Acetaminophen tablets - 650mg by mouth every six hours prn pain [Concomitant]
  8. Melatonin tablets - 3mg by mouth at bedtime prn [Concomitant]
  9. albuterol inhaler - 2 puffs q6h prn wheezing [Concomitant]

REACTIONS (3)
  - Metabolic syndrome [None]
  - Hepatic enzyme increased [None]
  - Therapy cessation [None]

NARRATIVE: CASE EVENT DATE: 20220516
